FAERS Safety Report 8249064-8 (Version None)
Quarter: 2012Q2

REPORT INFORMATION
  Report Type: 
  Country: None (occurrence: None)
  Receive Date: 20120402
  Receipt Date: 20120327
  Transmission Date: 20120825
  Serious: No
  Sender: FDA-Public Use
  Company Number: US-PFIZER INC-2012078916

PATIENT
  Sex: Male

DRUGS (5)
  1. ATROPINE [Concomitant]
     Dosage: UNK
  2. CAMPTOSAR [Suspect]
     Indication: COLON CANCER
     Dosage: UNK
     Route: 042
     Dates: start: 20110201, end: 20120301
  3. ALOXI [Concomitant]
     Dosage: UNK
  4. VECTIBIX [Concomitant]
     Dosage: UNK
  5. ATIVAN [Concomitant]
     Dosage: UNK

REACTIONS (2)
  - NAUSEA [None]
  - VOMITING [None]
